FAERS Safety Report 10167077 (Version 2)
Quarter: 2014Q2

REPORT INFORMATION
  Report Type: Other
  Country: US (occurrence: US)
  Receive Date: 20140512
  Receipt Date: 20140512
  Transmission Date: 20141212
  Serious: No
  Sender: FDA-Public Use
  Company Number: US-ENDO PHARMACEUTICALS INC.-TRIP20110021

PATIENT
  Age: 23 Year
  Sex: Female
  Weight: 80.72 kg

DRUGS (3)
  1. TRI-PREVIFEM TABLETS [Suspect]
     Indication: CONTRACEPTION
     Dosage: 1 TABLET
     Route: 048
     Dates: start: 201009, end: 20110615
  2. FLUOXETINE [Concomitant]
     Indication: DEPRESSION
     Route: 048
     Dates: start: 20110513, end: 201106
  3. FLUOXETINE [Concomitant]
     Route: 048
     Dates: start: 20110414, end: 20110512

REACTIONS (2)
  - Pregnancy on oral contraceptive [Recovered/Resolved]
  - Drug ineffective [Recovered/Resolved]
